FAERS Safety Report 21796127 (Version 1)
Quarter: 2022Q4

REPORT INFORMATION
  Report Type: Spontaneous
  Country: CN (occurrence: CN)
  Receive Date: 20221229
  Receipt Date: 20221229
  Transmission Date: 20230112
  Serious: Yes (Hospitalization)
  Sender: FDA-Public Use
  Company Number: CN-PFIZER INC-PV202200132303

PATIENT
  Age: 51 Year
  Sex: Male
  Weight: 69 kg

DRUGS (4)
  1. SUTENT [Suspect]
     Active Substance: SUNITINIB MALATE
     Indication: Targeted cancer therapy
     Dosage: 50 MG, 1X/DAY (QD D1-28)
     Route: 048
     Dates: start: 20221117, end: 20221212
  2. CAPECITABINE [Suspect]
     Active Substance: CAPECITABINE
     Indication: Chemotherapy
     Dosage: 1.5 G, 2X/DAY (BID, D1-14)
     Route: 048
     Dates: start: 20221117, end: 20221130
  3. OXALIPLATIN [Suspect]
     Active Substance: OXALIPLATIN
     Indication: Chemotherapy
     Dosage: 215 MG, 1X/DAY (QD D1)
     Route: 041
     Dates: start: 20221117, end: 20221117
  4. DEXTROSE [Concomitant]
     Active Substance: DEXTROSE
     Indication: Vehicle solution use
     Dosage: 500 ML, 1X/DAY
     Route: 041
     Dates: start: 20221117, end: 20221117

REACTIONS (2)
  - Platelet count decreased [Recovering/Resolving]
  - Myelosuppression [Unknown]

NARRATIVE: CASE EVENT DATE: 20221213
